FAERS Safety Report 6399534-2 (Version None)
Quarter: 2009Q4

REPORT INFORMATION
  Report Type: 
  Country: None (occurrence: None)
  Receive Date: 20091013
  Receipt Date: 20091013
  Transmission Date: 20100525
  Serious: Yes (Other)
  Sender: FDA-Public Use
  Company Number: None

PATIENT
  Sex: Male
  Weight: 100.6985 kg

DRUGS (2)
  1. OXYCODONE 2.5/APAP 500 [Suspect]
     Indication: BACK PAIN
     Dosage: 10/650 TID ORALLY
     Route: 048
  2. OXYCODONE 2.5/APAP 500 [Suspect]
     Indication: SURGICAL PROCEDURE REPEATED
     Dosage: 10/650 TID ORALLY
     Route: 048

REACTIONS (5)
  - DRUG INEFFECTIVE [None]
  - HYPERSENSITIVITY [None]
  - NAUSEA [None]
  - PRODUCT SUBSTITUTION ISSUE [None]
  - RASH [None]
